FAERS Safety Report 5621993-0 (Version None)
Quarter: 2008Q1

REPORT INFORMATION
  Report Type: 
  Country: None (occurrence: None)
  Receive Date: 20080211
  Receipt Date: 20080201
  Transmission Date: 20080703
  Serious: Yes (Death, Other)
  Sender: FDA-Public Use
  Company Number: HQWYE030414APR05

PATIENT
  Sex: Female

DRUGS (4)
  1. PREMPRO [Suspect]
  2. PROVERA [Suspect]
  3. ESTRACE [Suspect]
  4. PREMARIN [Suspect]

REACTIONS (2)
  - BREAST CANCER [None]
  - OVARIAN CANCER METASTATIC [None]
